FAERS Safety Report 8767225 (Version 1)
Quarter: 2012Q4

REPORT INFORMATION
  Report Type: 
  Country: US (occurrence: US)
  Receive Date: 20120904
  Receipt Date: 20120904
  Transmission Date: 20130627
  Serious: Yes (Hospitalization, Congenital Anomaly)
  Sender: FDA-Public Use
  Company Number: US-GLAXOSMITHKLINE-A0991767A

PATIENT
  Age: 0 Year
  Sex: Female
  Weight: 2.5 kg

DRUGS (1)
  1. PAXIL [Suspect]
     Indication: DEPRESSION
     Dosage: 20MG Per day
     Route: 064
     Dates: start: 20000223, end: 200109

REACTIONS (5)
  - Coarctation of the aorta [Unknown]
  - Patent ductus arteriosus [Unknown]
  - Bicuspid aortic valve [Unknown]
  - Atrial septal defect [Unknown]
  - Foetal exposure during pregnancy [Unknown]
